FAERS Safety Report 14323954 (Version 1)
Quarter: 2017Q4

REPORT INFORMATION
  Report Type: Spontaneous
  Country: US (occurrence: US)
  Receive Date: 20171226
  Receipt Date: 20171226
  Transmission Date: 20180321
  Serious: No
  Sender: FDA-Public Use
  Company Number: US-GLAXOSMITHKLINE-US2017197173

PATIENT

DRUGS (1)
  1. ABREVA [Suspect]
     Active Substance: DOCOSANOL
     Indication: ANOGENITAL WARTS
     Dosage: UNK

REACTIONS (2)
  - Drug administered at inappropriate site [Unknown]
  - Product use in unapproved indication [Unknown]
